FAERS Safety Report 20969426 (Version 2)
Quarter: 2022Q3

REPORT INFORMATION
  Report Type: Report from Study
  Country: JP (occurrence: JP)
  Receive Date: 20220616
  Receipt Date: 20220718
  Transmission Date: 20221026
  Serious: Yes (Hospitalization)
  Sender: FDA-Public Use
  Company Number: JP-BAUSCH-BL-2022-009826

PATIENT
  Age: 83 Year
  Sex: Female

DRUGS (2)
  1. TETRABENAZINE [Suspect]
     Active Substance: TETRABENAZINE
     Indication: Huntington^s disease
     Route: 048
     Dates: start: 20210909
  2. TETRABENAZINE [Suspect]
     Active Substance: TETRABENAZINE
     Route: 048
     Dates: start: 20220120

REACTIONS (1)
  - Spinal compression fracture [Unknown]
